FAERS Safety Report 26009152 (Version 1)
Quarter: 2025Q4

REPORT INFORMATION
  Report Type: Spontaneous
  Country: CA (occurrence: CA)
  Receive Date: 20251107
  Receipt Date: 20251107
  Transmission Date: 20260119
  Serious: Yes (Other)
  Sender: TEVA
  Company Number: CA-TEVA-VS-3388271

PATIENT
  Age: 34 Year
  Sex: Male

DRUGS (2)
  1. BUPROPION [Suspect]
     Active Substance: BUPROPION
     Indication: Product used for unknown indication
     Route: 065
  2. QUETIAPINE [Suspect]
     Active Substance: QUETIAPINE
     Indication: Product used for unknown indication
     Route: 065

REACTIONS (6)
  - Blood pressure decreased [Unknown]
  - Dizziness [Unknown]
  - Cerebrovascular accident [Unknown]
  - Malaise [Unknown]
  - Seizure [Unknown]
  - Pain in extremity [Unknown]
